FAERS Safety Report 5470089-X (Version None)
Quarter: 2007Q3

REPORT INFORMATION
  Report Type: 
  Country: None (occurrence: None)
  Receive Date: 20070927
  Receipt Date: 20070917
  Transmission Date: 20080115
  Serious: Yes (Other)
  Sender: FDA-Public Use
  Company Number: TN-PFIZER INC-2007077536

PATIENT
  Age: 48 Year
  Sex: Female

DRUGS (2)
  1. ARTHROTEC [Suspect]
     Indication: OSTEOARTHRITIS
     Route: 048
  2. METHOTREXATE [Concomitant]
     Route: 048

REACTIONS (2)
  - CHEST PAIN [None]
  - HOT FLUSH [None]
